FAERS Safety Report 23176513 (Version 1)
Quarter: 2023Q4

REPORT INFORMATION
  Report Type: Spontaneous
  Country: KR (occurrence: KR)
  Receive Date: 20231113
  Receipt Date: 20231113
  Transmission Date: 20240110
  Serious: Yes (Other)
  Sender: FDA-Public Use
  Company Number: KR-MYLANLABS-2023M1120428

PATIENT
  Sex: Male

DRUGS (2)
  1. LIPITOR [Suspect]
     Active Substance: ATORVASTATIN CALCIUM
     Indication: Hyperlipidaemia
     Dosage: UNK
     Route: 048
     Dates: start: 20201027
  2. TELMISARTAN [Suspect]
     Active Substance: TELMISARTAN
     Indication: Essential hypertension
     Dosage: 1 DOSAGE FORM, QD
     Route: 048
     Dates: start: 20201027

REACTIONS (1)
  - Cardiomyopathy [Recovered/Resolved]
